FAERS Safety Report 7085024-0 (Version None)
Quarter: 2010Q4

REPORT INFORMATION
  Report Type: 
  Country: None (occurrence: None)
  Receive Date: 20101105
  Receipt Date: 20101025
  Transmission Date: 20110411
  Serious: Yes (Other)
  Sender: FDA-Public Use
  Company Number: CA-JNJFOC-20101007199

PATIENT
  Sex: Male

DRUGS (4)
  1. REMICADE [Suspect]
     Indication: CROHN'S DISEASE
     Dosage: LOAD INFUSION 1, DOSE NOT SPECIFIED
     Route: 042
  2. REMICADE [Suspect]
     Dosage: LOAD INFUSION 2, DOSE NOT SPECIFIED
     Route: 042
  3. REMICADE [Suspect]
     Dosage: LOAD INFUSION 3, DOSE NOT SPECIFIED
     Route: 042
  4. REMICADE [Suspect]
     Route: 042

REACTIONS (1)
  - INTESTINAL STENOSIS [None]
